FAERS Safety Report 6830849-7 (Version None)
Quarter: 2010Q3

REPORT INFORMATION
  Report Type: 
  Country: None (occurrence: None)
  Receive Date: 20100709
  Receipt Date: 20100709
  Transmission Date: 20110219
  Serious: Yes (Death)
  Sender: FDA-Public Use
  Company Number: None

PATIENT
  Age: 56 Year
  Sex: Male

DRUGS (1)
  1. VALPROIC ACID [Suspect]
     Indication: AFFECTIVE DISORDER
     Dosage: 1250 MG EVERY DAY PO
     Route: 048
     Dates: start: 20010105, end: 20100315

REACTIONS (6)
  - HYPERAMMONAEMIC ENCEPHALOPATHY [None]
  - MEDIASTINAL MASS [None]
  - MENTAL STATUS CHANGES [None]
  - METABOLIC ENCEPHALOPATHY [None]
  - SUPERIOR VENA CAVAL OCCLUSION [None]
  - TRACHEAL STENOSIS [None]
